FAERS Safety Report 19239233 (Version 2)
Quarter: 2021Q2

REPORT INFORMATION
  Report Type: Spontaneous
  Country: CN (occurrence: CN)
  Receive Date: 20210510
  Receipt Date: 20210604
  Transmission Date: 20210717
  Serious: Yes (Other)
  Sender: FDA-Public Use
  Company Number: CN-GILEAD-2021-0528761

PATIENT
  Age: 45 Year
  Sex: Male

DRUGS (4)
  1. ADEFOVIR DIPIVOXIL. [Suspect]
     Active Substance: ADEFOVIR DIPIVOXIL
     Indication: ANTIVIRAL TREATMENT
     Dosage: 10 MG
     Route: 048
     Dates: start: 2008, end: 2018
  2. ENTECAVIR. [Suspect]
     Active Substance: ENTECAVIR
     Indication: ANTIVIRAL TREATMENT
     Dosage: 0.5 MG
     Route: 048
     Dates: start: 2008, end: 2018
  3. TENOFOVIR DISOPROXIL FUMARATE. [Concomitant]
     Active Substance: TENOFOVIR DISOPROXIL FUMARATE
     Dosage: 300 MG, QD
     Route: 048
     Dates: start: 2018
  4. INTERFERON ALFA 2B [Suspect]
     Active Substance: INTERFERON ALFA-2B
     Indication: ANTIVIRAL TREATMENT
     Dosage: 3 MILLION IU, QOD
     Route: 025
     Dates: start: 2008, end: 2018

REACTIONS (2)
  - Treatment noncompliance [Recovered/Resolved]
  - Drug ineffective [Recovered/Resolved]
